FAERS Safety Report 7611326-2 (Version None)
Quarter: 2011Q3

REPORT INFORMATION
  Report Type: 
  Country: None (occurrence: None)
  Receive Date: 20110715
  Receipt Date: 20110617
  Transmission Date: 20111222
  Serious: No
  Sender: FDA-Public Use
  Company Number: US-BAYER-2011-053427

PATIENT
  Sex: Male

DRUGS (4)
  1. COUGH SYRUP [Suspect]
     Dosage: 3 DF, ONCE
  2. TYLENOL-500 [Suspect]
     Dosage: 6 DF, ONCE
     Route: 048
  3. ALEVE (CAPLET) [Suspect]
     Dosage: 4 DF, ONCE
     Route: 048
  4. IBUPROFEN [Suspect]
     Dosage: 2 DF, ONCE

REACTIONS (1)
  - EUPHORIC MOOD [None]
